FAERS Safety Report 6360864-1 (Version None)
Quarter: 2009Q3

REPORT INFORMATION
  Report Type: 
  Country: None (occurrence: None)
  Receive Date: 20090915
  Receipt Date: 20090915
  Transmission Date: 20100115
  Serious: Yes (Life-Threatening, Disabling)
  Sender: FDA-Public Use
  Company Number: None

PATIENT
  Sex: Female
  Weight: 113.3993 kg

DRUGS (1)
  1. HUMALOG [Suspect]
     Indication: DIABETES MELLITUS
     Dosage: 20 UNITS 3X DAILY NEEDLE

REACTIONS (7)
  - BLOOD PRESSURE INCREASED [None]
  - DIZZINESS [None]
  - DYSPNOEA [None]
  - IMMOBILE [None]
  - MUSCULOSKELETAL STIFFNESS [None]
  - SKIN DISCOLOURATION [None]
  - VASCULAR RUPTURE [None]
